FAERS Safety Report 18502360 (Version 1)
Quarter: 2020Q4

REPORT INFORMATION
  Report Type: Other
  Country: US (occurrence: US)
  Receive Date: 20201113
  Receipt Date: 20201113
  Transmission Date: 20210114
  Serious: No
  Sender: FDA-Public Use
  Company Number: US-LEADIANT BIOSCIENCES INC-2020STPI000276

PATIENT
  Sex: Male

DRUGS (10)
  1. CYSTAGON [Concomitant]
     Active Substance: CYSTEAMINE BITARTRATE
  2. CALCITROL [CALCITRIOL] [Concomitant]
     Active Substance: CALCITRIOL
  3. CYSTARAN [Suspect]
     Active Substance: CYSTEAMINE HYDROCHLORIDE
     Indication: CYSTINOSIS
     Dosage: 1 GTT DROP IN BOTH EYES WHILE AWAKE
     Route: 047
     Dates: start: 20140806
  4. FAMOTIDINE. [Concomitant]
     Active Substance: FAMOTIDINE
  5. VIRT PHOS NEUTRAL [Concomitant]
  6. METHYLPHENIDATE [METHYLPHENIDATE HYDROCHLORIDE] [Concomitant]
     Active Substance: METHYLPHENIDATE HYDROCHLORIDE
  7. RANITIDINE. [Concomitant]
     Active Substance: RANITIDINE
  8. LOSARTIN [Concomitant]
     Active Substance: LOSARTAN
  9. POTASSIUM CHLORIDE. [Concomitant]
     Active Substance: POTASSIUM CHLORIDE
  10. SOLFENACIN [Concomitant]

REACTIONS (1)
  - Intentional product misuse [Recovered/Resolved]
